FAERS Safety Report 20003209 (Version 2)
Quarter: 2022Q1

REPORT INFORMATION
  Report Type: Spontaneous
  Country: IT (occurrence: IT)
  Receive Date: 20211027
  Receipt Date: 20220126
  Transmission Date: 20220423
  Serious: Yes (Hospitalization, Other)
  Sender: FDA-Public Use
  Company Number: IT-002147023-NVSC2021IT229986

PATIENT
  Age: 12 Year
  Sex: Female

DRUGS (1)
  1. RITUXIMAB [Suspect]
     Active Substance: RITUXIMAB
     Indication: Thrombotic thrombocytopenic purpura
     Dosage: 375 MG/M2, QW(6 INFUSIONS)
     Route: 041

REACTIONS (5)
  - Pneumonitis [Recovered/Resolved]
  - Pulmonary toxicity [Recovered/Resolved]
  - Immunoglobulins decreased [Recovered/Resolved]
  - Off label use [Unknown]
  - Off label use [Unknown]
